FAERS Safety Report 20630381 (Version 1)
Quarter: 2022Q1

REPORT INFORMATION
  Report Type: Spontaneous
  Country: CN (occurrence: CN)
  Receive Date: 20220324
  Receipt Date: 20220324
  Transmission Date: 20220423
  Serious: Yes (Life-Threatening)
  Sender: FDA-Public Use
  Company Number: CN-BAYER-2022A041350

PATIENT
  Age: 90 Year
  Sex: Male
  Weight: 65 kg

DRUGS (4)
  1. XARELTO [Suspect]
     Active Substance: RIVAROXABAN
     Indication: Anticoagulant therapy
     Dosage: 15 MG, QD
     Route: 048
     Dates: start: 20220302, end: 20220317
  2. CLOPIDOGREL BISULFATE [Suspect]
     Active Substance: CLOPIDOGREL BISULFATE
     Indication: Platelet aggregation inhibition
     Dosage: 75 MG, QD
     Route: 048
     Dates: start: 20220302
  3. METOPROLOL [Concomitant]
     Active Substance: METOPROLOL
     Indication: Heart rate increased
     Dosage: 23.75 MG, QD
     Route: 048
     Dates: start: 20220302, end: 20220318
  4. ATORVASTATIN CALCIUM [Concomitant]
     Active Substance: ATORVASTATIN CALCIUM
     Indication: Arteriosclerosis
     Dosage: 10 MG, QD
     Route: 048
     Dates: start: 20220302, end: 20220318

REACTIONS (3)
  - Coagulation time prolonged [Recovering/Resolving]
  - Contraindicated product administered [Unknown]
  - Product monitoring error [Unknown]

NARRATIVE: CASE EVENT DATE: 20220302
